FAERS Safety Report 22379542 (Version 8)
Quarter: 2025Q3

REPORT INFORMATION
  Report Type: Spontaneous
  Country: US (occurrence: US)
  Receive Date: 20230529
  Receipt Date: 20250702
  Transmission Date: 20251020
  Serious: Yes (Hospitalization, Other)
  Sender: PFIZER
  Company Number: US-PFIZER INC-PV202300093715

PATIENT
  Age: 82 Year
  Sex: Female

DRUGS (1)
  1. XELJANZ XR [Suspect]
     Active Substance: TOFACITINIB CITRATE

REACTIONS (9)
  - Spinal fracture [Unknown]
  - Illness [Unknown]
  - Mental impairment [Unknown]
  - Back injury [Unknown]
  - Pain [Unknown]
  - Pain in extremity [Unknown]
  - Memory impairment [Unknown]
  - Dyspnoea [Unknown]
  - Arthritis [Unknown]
